FAERS Safety Report 9320904 (Version 1)
Quarter: 2013Q2

REPORT INFORMATION
  Report Type: Spontaneous
  Country: FI (occurrence: FI)
  Receive Date: 20130531
  Receipt Date: 20130531
  Transmission Date: 20140414
  Serious: Yes (Other)
  Sender: FDA-Public Use
  Company Number: PHHY2013FI054739

PATIENT
  Age: 67 Year
  Sex: Male

DRUGS (2)
  1. ZOMETA [Suspect]
     Indication: NEOPLASM PROPHYLAXIS
     Dosage: 4 MG, UNK
     Dates: start: 20130323, end: 20130527
  2. INSULIN [Concomitant]
     Indication: DIABETES MELLITUS
     Dosage: UNK UKN, UNK

REACTIONS (3)
  - Iritis [Unknown]
  - Nephropathy [Unknown]
  - Blood creatinine increased [Unknown]
